FAERS Safety Report 23878349 (Version 2)
Quarter: 2024Q2

REPORT INFORMATION
  Report Type: Spontaneous
  Country: US (occurrence: US)
  Receive Date: 20240521
  Receipt Date: 20240529
  Transmission Date: 20240716
  Serious: Yes (Hospitalization, Other)
  Sender: FDA-Public Use
  Company Number: US-SUNPHARMA-2024R1-447133AA

PATIENT
  Age: 59 Year
  Sex: Female

DRUGS (2)
  1. METOPROLOL [Suspect]
     Active Substance: METOPROLOL
     Indication: Arrhythmogenic right ventricular dysplasia
     Dosage: UNK
     Route: 065
  2. MEXILETINE [Suspect]
     Active Substance: MEXILETINE
     Indication: Arrhythmogenic right ventricular dysplasia
     Dosage: UNK
     Route: 065

REACTIONS (1)
  - Condition aggravated [Unknown]
